FAERS Safety Report 8399772-3 (Version None)
Quarter: 2012Q2

REPORT INFORMATION
  Report Type: 
  Country: None (occurrence: None)
  Receive Date: 20120531
  Receipt Date: 20120523
  Transmission Date: 20120825
  Serious: Yes (Death, Hospitalization)
  Sender: FDA-Public Use
  Company Number: US-BRISTOL-MYERS SQUIBB COMPANY-15781941

PATIENT
  Age: 70 Year
  Sex: Male

DRUGS (15)
  1. DEXA [Concomitant]
  2. NYSTATIN [Concomitant]
  3. LOMOTIL [Concomitant]
     Dates: start: 20110517
  4. NORCO [Concomitant]
     Dosage: 1DF-5/235(UNITS NOT SP)
  5. COMPAZINE [Concomitant]
  6. TOPROL-XL [Concomitant]
     Dates: start: 20100101
  7. DIPHENOXYLATE HCL + ATROPINE SULFATE [Concomitant]
     Dosage: 1-2TABS
  8. PEPCID [Concomitant]
  9. IPILIMUMAB [Suspect]
     Indication: MALIGNANT MELANOMA
     Route: 042
     Dates: start: 20110316, end: 20110517
  10. PEPCID [Concomitant]
     Dates: start: 20110101
  11. TOPROL-XL [Concomitant]
  12. KEPPRA [Concomitant]
  13. ASPIRIN [Concomitant]
  14. MULTI-VITAMINS [Concomitant]
  15. ZOCOR [Concomitant]

REACTIONS (4)
  - NEOPLASM MALIGNANT [None]
  - DIARRHOEA [None]
  - DEHYDRATION [None]
  - ENTEROCOLITIS HAEMORRHAGIC [None]
